FAERS Safety Report 6162422-0 (Version None)
Quarter: 2009Q2

REPORT INFORMATION
  Report Type: 
  Country: None (occurrence: None)
  Receive Date: 20090421
  Receipt Date: 20090213
  Transmission Date: 20091009
  Serious: Yes (Other)
  Sender: FDA-Public Use
  Company Number: US-BAYER-200910441NA

PATIENT
  Age: 64 Year
  Sex: Female

DRUGS (11)
  1. AVELOX [Suspect]
     Indication: BRONCHITIS
     Dosage: TOTAL DAILY DOSE: 400 MG  UNIT DOSE: 400 MG
     Route: 048
     Dates: start: 20081115, end: 20081121
  2. STUDY MEDICINE (BLINDED) NOS [Suspect]
     Dates: start: 20080929
  3. STUDY MEDICINE (OPEN-LABEL) NOS [Suspect]
     Dates: end: 20081029
  4. STUDY MEDICINE (OPEN-LABEL) NOS [Suspect]
     Dates: start: 20081113
  5. STUDY MEDICINE (OPEN-LABEL) NOS [Suspect]
     Dates: start: 20081030, end: 20081112
  6. TYLENOL (CAPLET) [Concomitant]
  7. HUMULIN R [Concomitant]
  8. HUMULIN N [Concomitant]
  9. TYLENOL [Concomitant]
  10. ICY HOT [Concomitant]
  11. MILK OF MAGNESIA TAB [Concomitant]

REACTIONS (2)
  - ASTHENIA [None]
  - BRONCHITIS [None]
